FAERS Safety Report 19191719 (Version 1)
Quarter: 2021Q2

REPORT INFORMATION
  Report Type: Spontaneous
  Country: GB (occurrence: GB)
  Receive Date: 20210428
  Receipt Date: 20210428
  Transmission Date: 20210717
  Serious: Yes (Disabling, Other)
  Sender: FDA-Public Use
  Company Number: GB-PFIZER INC-2021422459

PATIENT
  Age: 66 Year
  Sex: Female
  Weight: 53.52 kg

DRUGS (8)
  1. THEICAL D3 [Concomitant]
     Dosage: UNK
  2. FOLIC ACID. [Concomitant]
     Active Substance: FOLIC ACID
     Dosage: UNK
  3. GAMOLENIC ACID [Concomitant]
     Active Substance: GAMOLENIC ACID
     Dosage: UNK
  4. IBANDRONIC ACID. [Concomitant]
     Active Substance: IBANDRONIC ACID
     Dosage: UNK
  5. PARACETAMOL [Concomitant]
     Active Substance: ACETAMINOPHEN
     Dosage: 500 MG
  6. ZAPAIN [Concomitant]
     Active Substance: ACETAMINOPHEN\CODEINE PHOSPHATE
     Dosage: UNK
  7. PREDNISOLONE. [Concomitant]
     Active Substance: PREDNISOLONE
     Dosage: 5 MG
  8. XELJANZ [Suspect]
     Active Substance: TOFACITINIB CITRATE
     Dosage: 5 MG, 1X/DAY
     Route: 048
     Dates: start: 20210305, end: 20210315

REACTIONS (9)
  - Dyspnoea [Recovered/Resolved with Sequelae]
  - Abdominal pain upper [Unknown]
  - Diarrhoea [Unknown]
  - Listless [Unknown]
  - Illness [Unknown]
  - Diverticulitis [Recovered/Resolved with Sequelae]
  - Haemorrhage [Unknown]
  - Peritonitis [Unknown]
  - Asthenia [Unknown]

NARRATIVE: CASE EVENT DATE: 20210308
